FAERS Safety Report 19491000 (Version 2)
Quarter: 2021Q3

REPORT INFORMATION
  Report Type: Report from Study
  Country: US (occurrence: US)
  Receive Date: 20210705
  Receipt Date: 20210712
  Transmission Date: 20211014
  Serious: Yes (Other)
  Sender: FDA-Public Use
  Company Number: US-BIOVITRUM-2021US5015

PATIENT
  Age: 30 Year
  Sex: Male

DRUGS (2)
  1. KINERET [Suspect]
     Active Substance: ANAKINRA
     Indication: STILL^S DISEASE
     Route: 058
     Dates: start: 202004
  2. KINERET [Suspect]
     Active Substance: ANAKINRA
     Indication: GOUTY TOPHUS
     Route: 058
     Dates: start: 202004

REACTIONS (5)
  - Off label use [Unknown]
  - Haemorrhage [Unknown]
  - Product dose omission issue [Unknown]
  - Injection site pain [Unknown]
  - Pain [Unknown]

NARRATIVE: CASE EVENT DATE: 202004
